FAERS Safety Report 14638232 (Version 1)
Quarter: 2018Q1

REPORT INFORMATION
  Report Type: Spontaneous
  Country: IE (occurrence: IE)
  Receive Date: 20180314
  Receipt Date: 20180314
  Transmission Date: 20180509
  Serious: Yes (Death)
  Sender: FDA-Public Use
  Company Number: IE-PFIZER INC-2018101938

PATIENT
  Age: 53 Year
  Sex: Male

DRUGS (1)
  1. DEPO-MEDRONE [Suspect]
     Active Substance: METHYLPREDNISOLONE
     Dosage: 40 MG, UNK

REACTIONS (2)
  - Anaphylactic shock [Fatal]
  - Documented hypersensitivity to administered product [Fatal]
